FAERS Safety Report 16070156 (Version 1)
Quarter: 2019Q1

REPORT INFORMATION
  Report Type: Spontaneous
  Country: GB (occurrence: GB)
  Receive Date: 20190314
  Receipt Date: 20190314
  Transmission Date: 20190418
  Serious: Yes (Other)
  Sender: FDA-Public Use
  Company Number: GB-ACCORD-112672

PATIENT
  Age: 1 Year
  Sex: Male
  Weight: 12 kg

DRUGS (12)
  1. CLARITHROMYCIN. [Concomitant]
     Active Substance: CLARITHROMYCIN
     Dates: start: 20180705, end: 20180712
  2. BALNEUM [Concomitant]
     Dosage: APPLY
     Dates: start: 20180705
  3. SALBUTAMOL [Concomitant]
     Active Substance: ALBUTEROL
     Dosage: ONE OR TWO PUFFS
     Route: 055
     Dates: start: 20180726
  4. CLOBETASOL [Concomitant]
     Active Substance: CLOBETASOL
     Dosage: APPLY THINLY, TO THE AFFECTED AREA(S)
     Dates: start: 20180726, end: 20180823
  5. HYDROCORTISONE. [Concomitant]
     Active Substance: HYDROCORTISONE
     Indication: ECZEMA
     Dosage: APPLY SPARINGLY 2-3 TIMES WEEKLY TO AREAS OF ECZEMA
     Dates: start: 20170717
  6. MONTELUKAST [Suspect]
     Active Substance: MONTELUKAST SODIUM
     Indication: PRODUCT USED FOR UNKNOWN INDICATION
     Dates: start: 20180921
  7. DERMOL [Concomitant]
     Active Substance: BENZALKONIUM CHLORIDE\CHLORHEXIDINE HYDROCHLORIDE\ISOPROPYL MYRISTATE\PARAFFIN
     Dosage: (USE ONLY IF ANTIMICROBIAL FUNCTION REQUIRED)
     Dates: start: 20170717
  8. CHLORPHENAMINE/CHLORPHENAMINE MALEATE/CHLORPHENAMINE RESINATE/CHLORPHENAMINE TANNATE [Concomitant]
     Dosage: UP TO TWICE
     Dates: start: 20180417
  9. MOMETASONE [Concomitant]
     Active Substance: MOMETASONE
     Dosage: APPLY DAILY IN SHORT BURSTS
     Dates: start: 20180705
  10. EPADERM [Concomitant]
     Active Substance: MINERAL OIL\PETROLATUM\WAX, EMULSIFYING
     Dosage: USE AS DIRECTED
     Dates: start: 20180705
  11. BETNOVATE [Concomitant]
     Active Substance: BETAMETHASONE
     Indication: ECZEMA
     Dosage: APPLY TO PATCHES OF ECZEMA ON THE BODY
     Dates: start: 20170717, end: 20180712
  12. ZEROBASE [Concomitant]
     Active Substance: MINERAL OIL\PARAFFIN
     Dosage: THIS IS THE SAME AS CETRABAN: AIM TO USE 250G
     Dates: start: 20170717

REACTIONS (2)
  - Eczema [Unknown]
  - Wheezing [Unknown]

NARRATIVE: CASE EVENT DATE: 20180921
